FAERS Safety Report 24407688 (Version 1)
Quarter: 2024Q4

REPORT INFORMATION
  Report Type: Spontaneous
  Country: US (occurrence: US)
  Receive Date: 20241007
  Receipt Date: 20241007
  Transmission Date: 20250114
  Serious: Yes (Other)
  Sender: RECKITT BENCKISER
  Company Number: US-INDIVIOR EUROPE LIMITED-INDV-142487-2024

PATIENT
  Sex: Female

DRUGS (4)
  1. SUBLOCADE [Suspect]
     Active Substance: BUPRENORPHINE
     Indication: Drug dependence
     Dosage: UNK, QMO
     Route: 058
  2. SUBLOCADE [Suspect]
     Active Substance: BUPRENORPHINE
  3. FENTANYL [Suspect]
     Active Substance: FENTANYL
     Indication: Product used for unknown indication
     Dosage: UNK
     Route: 055
  4. NARCAN [Suspect]
     Active Substance: NALOXONE HYDROCHLORIDE
     Indication: Drug dependence
     Dosage: UNK
     Route: 065
     Dates: start: 20240103

REACTIONS (2)
  - Coma [Not Recovered/Not Resolved]
  - Drug dependence [Unknown]

NARRATIVE: CASE EVENT DATE: 20240103
